FAERS Safety Report 6082728-3 (Version None)
Quarter: 2009Q1

REPORT INFORMATION
  Report Type: 
  Country: None (occurrence: None)
  Receive Date: 20090218
  Receipt Date: 20090209
  Transmission Date: 20090719
  Serious: Yes (Hospitalization)
  Sender: FDA-Public Use
  Company Number: DE-PFIZER INC-2008153121

PATIENT

DRUGS (8)
  1. SORTIS [Suspect]
     Indication: HYPERLIPIDAEMIA
     Dosage: 20 MG, 1X/DAY
     Route: 048
     Dates: start: 20081209
  2. SORTIS [Suspect]
     Indication: MYOCARDIAL INFARCTION
  3. METOHEXAL [Concomitant]
     Indication: MYOCARDIAL INFARCTION
     Dosage: UNK, 2X/DAY
     Route: 048
     Dates: start: 20070601
  4. METOHEXAL [Concomitant]
     Indication: HYPERTENSION
  5. ATACAND [Concomitant]
     Indication: MYOCARDIAL INFARCTION
     Dosage: 8 MG, 1X/DAY
     Route: 048
     Dates: start: 20070601
  6. ATACAND [Concomitant]
     Indication: HYPERTENSION
  7. ASPIRIN [Concomitant]
     Indication: MYOCARDIAL INFARCTION
     Dosage: 100 MG, 1X/DAY
     Route: 048
     Dates: start: 20070601
  8. ASPIRIN [Concomitant]
     Indication: HYPERTENSION

REACTIONS (1)
  - CONVULSION [None]
